FAERS Safety Report 18619486 (Version 1)
Quarter: 2020Q4

REPORT INFORMATION
  Report Type: Report from Study
  Country: FR (occurrence: FR)
  Receive Date: 20201215
  Receipt Date: 20201215
  Transmission Date: 20210114
  Serious: Yes (Life-Threatening, Other)
  Sender: FDA-Public Use
  Company Number: FR-SA-2020SA140485

PATIENT

DRUGS (26)
  1. ACTRAPID [Concomitant]
     Active Substance: INSULIN HUMAN
  2. POTASSIUM [Concomitant]
     Active Substance: POTASSIUM
  3. CETIRIZINE [Concomitant]
     Active Substance: CETIRIZINE HYDROCHLORIDE
  4. PRIMPERAN [Concomitant]
     Active Substance: METOCLOPRAMIDE HYDROCHLORIDE
  5. SARILUMAB [Suspect]
     Active Substance: SARILUMAB
     Indication: CORONAVIRUS INFECTION
     Dosage: 400 MG, 1X
     Route: 042
     Dates: start: 20200405, end: 20200405
  6. KARDEGIC [Concomitant]
     Active Substance: ASPIRIN DL-LYSINE
  7. HEPARIN [Concomitant]
     Active Substance: HEPARIN SODIUM
  8. SIMVASTATINE [Concomitant]
     Active Substance: SIMVASTATIN
  9. MAGNESIUM SULFATE. [Concomitant]
     Active Substance: MAGNESIUM SULFATE
  10. SODIUM CHLORIDE. [Concomitant]
     Active Substance: SODIUM CHLORIDE
  11. NEBIVOLOL. [Concomitant]
     Active Substance: NEBIVOLOL
  12. LOXEN [NICARDIPINE HYDROCHLORIDE] [Concomitant]
     Active Substance: NICARDIPINE HYDROCHLORIDE
  13. PLAQUENIL [Concomitant]
     Active Substance: HYDROXYCHLOROQUINE SULFATE
  14. EUPRESSYL [URAPIDIL] [Concomitant]
     Active Substance: URAPIDIL
  15. CALCIPARINE [Suspect]
     Active Substance: HEPARIN CALCIUM
     Indication: PRODUCT USED FOR UNKNOWN INDICATION
     Dosage: UNK
     Dates: start: 20200405
  16. SUFENTANIL [Concomitant]
     Active Substance: SUFENTANIL
  17. LANTUS [Concomitant]
     Active Substance: INSULIN GLARGINE
  18. BASAGLAR [Concomitant]
     Active Substance: INSULIN GLARGINE
  19. AMLODIPINE [Concomitant]
     Active Substance: AMLODIPINE BESYLATE
  20. NOVORAPID [Concomitant]
     Active Substance: INSULIN ASPART
  21. DOLIPRANE [Concomitant]
     Active Substance: ACETAMINOPHEN
  22. PHOCYTAN [Concomitant]
     Active Substance: .ALPHA.-GLUCOSE-1-PHOSPHATE
  23. CERNEVIT [Concomitant]
     Active Substance: VITAMINS
  24. MIDAZOLAM. [Concomitant]
     Active Substance: MIDAZOLAM
  25. ATRACURIUM [Concomitant]
     Active Substance: ATRACURIUM
  26. CEFTRIAXONE. [Concomitant]
     Active Substance: CEFTRIAXONE

REACTIONS (4)
  - Compartment syndrome [Recovered/Resolved]
  - Acute kidney injury [Recovered/Resolved]
  - Catheter site haemorrhage [Recovered/Resolved]
  - Neutropenia [Recovered/Resolved]

NARRATIVE: CASE EVENT DATE: 20200406
